FAERS Safety Report 23779787 (Version 1)
Quarter: 2024Q2

REPORT INFORMATION
  Report Type: Spontaneous
  Country: US (occurrence: None)
  Receive Date: 20240424
  Receipt Date: 20240424
  Transmission Date: 20240716
  Serious: No
  Sender: FDA-Public Use
  Company Number: None

PATIENT
  Age: 80 Year
  Sex: Male

DRUGS (1)
  1. LENALIDOMIDE [Suspect]
     Active Substance: LENALIDOMIDE
     Dosage: OTHER QUANTITY : 10;?OTHER FREQUENCY : QD FOR 21 DAYS;?

REACTIONS (2)
  - Haemoglobin decreased [None]
  - Blood calcium decreased [None]
